FAERS Safety Report 25866463 (Version 3)
Quarter: 2025Q4

REPORT INFORMATION
  Report Type: Spontaneous
  Country: US (occurrence: US)
  Receive Date: 20250930
  Receipt Date: 20251002
  Transmission Date: 20260118
  Serious: No
  Sender: PFIZER
  Company Number: US-PFIZER INC-202500193795

PATIENT
  Age: 88 Year
  Sex: Female
  Weight: 77.11 kg

DRUGS (2)
  1. PAXLOVID [Suspect]
     Active Substance: NIRMATRELVIR\RITONAVIR
     Indication: COVID-19 treatment
     Dosage: [NIRMATRELVIR 300 MG]/[RITONAVIR 100 MG]; 2X/DAY
     Dates: start: 20250918, end: 20250923
  2. ASPIRIN [Concomitant]
     Active Substance: ASPIRIN
     Indication: Blood pressure abnormal
     Dosage: UNK

REACTIONS (5)
  - Nasopharyngitis [Recovering/Resolving]
  - Sneezing [Unknown]
  - Rhinorrhoea [Unknown]
  - Oropharyngeal pain [Unknown]
  - Headache [Unknown]

NARRATIVE: CASE EVENT DATE: 20250926
